FAERS Safety Report 4920338-9 (Version None)
Quarter: 2006Q1

REPORT INFORMATION
  Report Type: 
  Country: None (occurrence: None)
  Receive Date: 20060113
  Receipt Date: 20051010
  Transmission Date: 20060701
  Serious: No
  Sender: FDA-Public Use
  Company Number: 2005SP003429

PATIENT
  Age: 52 Year
  Sex: Female
  Weight: 158.759 kg

DRUGS (9)
  1. LUNESTA [Suspect]
     Indication: INSOMNIA
     Dosage: ORAL
     Route: 048
     Dates: start: 20050901, end: 20051001
  2. MOBIC [Concomitant]
  3. GLUCOPHAGE [Concomitant]
  4. ATORVASTATIN CALCIUM [Concomitant]
  5. PREVACID [Concomitant]
  6. MULTIVITAMIN [Concomitant]
  7. AVANDIA [Concomitant]
  8. SINGULAIR [Concomitant]
  9. ALLEGRA [Concomitant]

REACTIONS (3)
  - DYSGEUSIA [None]
  - PARADOXICAL DRUG REACTION [None]
  - SOMNOLENCE [None]
